FAERS Safety Report 8002799-4 (Version None)
Quarter: 2011Q4

REPORT INFORMATION
  Report Type: 
  Country: None (occurrence: None)
  Receive Date: 20111222
  Receipt Date: 20111212
  Transmission Date: 20120403
  Serious: Yes (Hospitalization)
  Sender: FDA-Public Use
  Company Number: US-WATSON-2011-21486

PATIENT
  Sex: Female

DRUGS (5)
  1. ATIVAN [Suspect]
     Indication: ANXIETY
     Dosage: UNK
     Route: 048
     Dates: start: 20100101, end: 20111107
  2. NORCO 5/325 (WATSON LABORATORIES) [Suspect]
     Dosage: 1 TAB, TID
     Route: 048
     Dates: start: 20111108
  3. OXYCONTIN [Suspect]
     Indication: PAIN
     Dosage: UNK
     Route: 048
     Dates: start: 20100101, end: 20111107
  4. NORCO 5/325 (WATSON LABORATORIES) [Suspect]
     Indication: PAIN
     Dosage: 1-2 TABS, QID
     Route: 048
     Dates: start: 20100101, end: 20111107
  5. HYDROCODONE BITARTRATE AND ACETAMINOPHEN [Suspect]
     Indication: PAIN
     Dosage: 1 TAB FOUR TIMES A DAY
     Route: 048
     Dates: start: 20100101, end: 20111107

REACTIONS (2)
  - MULTIPLE DRUG OVERDOSE [None]
  - WEANING FAILURE [None]
